FAERS Safety Report 5508501-X (Version None)
Quarter: 2007Q4

REPORT INFORMATION
  Report Type: 
  Country: None (occurrence: None)
  Receive Date: 20071105
  Receipt Date: 20071019
  Transmission Date: 20080405
  Serious: Yes (Other)
  Sender: FDA-Public Use
  Company Number: DSA_30809_2007

PATIENT
  Sex: Male

DRUGS (8)
  1. CARDIZEM [Suspect]
     Indication: ATRIAL FIBRILLATION
     Dosage: (DF)
  2. VORICONAZOLE [Suspect]
     Dosage: (DF)
  3. METHYLPREDNISOLONE SODIUM SUCCINATE [Suspect]
     Dosage: (DF)
  4. PREDNISONE TAB [Suspect]
     Indication: BONE MARROW TRANSPLANT REJECTION
     Dosage: (DF)
  5. ACYCLOVIR [Suspect]
     Dosage: (DF)
  6. ANTIBIOTICS [Suspect]
     Dosage: (DF)
  7. CYCLOSPORINE [Concomitant]
  8. ALL OTHER THERAPEUTIC PRODUCTS (ALL OTHER THERAPEUTIC PRODUCTS) [Concomitant]

REACTIONS (2)
  - AMNESIA [None]
  - CONVULSION [None]
